FAERS Safety Report 8247972-5 (Version None)
Quarter: 2012Q1

REPORT INFORMATION
  Report Type: 
  Country: None (occurrence: None)
  Receive Date: 20120330
  Receipt Date: 20120325
  Transmission Date: 20120608
  Serious: Yes (Death, Hospitalization, Other)
  Sender: FDA-Public Use
  Company Number: US-ACTELION-A-US2012-59684

PATIENT

DRUGS (5)
  1. OXYGEN [Concomitant]
  2. CIALIS [Concomitant]
  3. TRACLEER [Suspect]
     Indication: PULMONARY ARTERIAL HYPERTENSION
     Dosage: UNK
     Route: 048
     Dates: start: 20051018
  4. CALCIUM CHANNEL BLOCKERS [Concomitant]
  5. DIGOXIN [Concomitant]

REACTIONS (8)
  - HEPATIC ENCEPHALOPATHY [None]
  - BLOOD BILIRUBIN INCREASED [None]
  - CONFUSIONAL STATE [None]
  - MALAISE [None]
  - HEPATIC FAILURE [None]
  - DISEASE COMPLICATION [None]
  - DISCOMFORT [None]
  - FLUID RETENTION [None]
